FAERS Safety Report 6391673-5 (Version None)
Quarter: 2009Q4

REPORT INFORMATION
  Report Type: 
  Country: None (occurrence: None)
  Receive Date: 20091005
  Receipt Date: 20090925
  Transmission Date: 20100525
  Serious: Yes (Other)
  Sender: FDA-Public Use
  Company Number: ADR33632009

PATIENT
  Age: 17 Year
  Sex: Female

DRUGS (1)
  1. RISPERIDONE [Suspect]
     Dosage: 5 MG - 1/1DAY ORAL
     Route: 048

REACTIONS (2)
  - BLOOD PROLACTIN INCREASED [None]
  - HEADACHE [None]
